FAERS Safety Report 5202519-2 (Version None)
Quarter: 2006Q4

REPORT INFORMATION
  Report Type: 
  Country: None (occurrence: None)
  Receive Date: 20061016
  Receipt Date: 20060823
  Transmission Date: 20070319
  Serious: No
  Sender: FDA-Public Use
  Company Number: 2006SP003103

PATIENT
  Age: 58 Year
  Sex: Female
  Weight: 68.0396 kg

DRUGS (6)
  1. LUNESTA [Suspect]
     Indication: INSOMNIA
     Dosage: 3 MG;HS;ORAL
     Route: 048
     Dates: start: 20060101
  2. PROMETHAZINE [Suspect]
     Indication: DRUG USE FOR UNKNOWN INDICATION
     Dosage: UNKNOWN;HS;UNKNOWN
     Dates: start: 20060101
  3. NEXIUM [Concomitant]
  4. PRAVACHOL [Concomitant]
  5. STOOL SOFTENER [Concomitant]
  6. AMBIEN [Concomitant]

REACTIONS (2)
  - CHILLS [None]
  - PYREXIA [None]
